FAERS Safety Report 22400730 (Version 1)
Quarter: 2023Q2

REPORT INFORMATION
  Report Type: Spontaneous
  Country: FR (occurrence: FR)
  Receive Date: 20230602
  Receipt Date: 20230602
  Transmission Date: 20230722
  Serious: Yes (Other)
  Sender: FDA-Public Use
  Company Number: None

PATIENT
  Age: 22 Year
  Sex: Female
  Weight: 72 kg

DRUGS (2)
  1. METHOTREXATE SODIUM [Suspect]
     Active Substance: METHOTREXATE SODIUM
     Indication: T-cell type acute leukaemia
     Dosage: 35 MG, WEEKLY
     Route: 048
     Dates: start: 20210104, end: 202205
  2. PURINETHOL [Suspect]
     Active Substance: MERCAPTOPURINE
     Indication: T-cell type acute leukaemia
     Dosage: 50 MG, 1X/DAY
     Route: 048
     Dates: start: 20210104, end: 202205

REACTIONS (1)
  - Coagulation factor VII level decreased [Recovered/Resolved]

NARRATIVE: CASE EVENT DATE: 20220501
